FAERS Safety Report 7803353-7 (Version None)
Quarter: 2011Q4

REPORT INFORMATION
  Report Type: 
  Country: None (occurrence: None)
  Receive Date: 20111007
  Receipt Date: 20111003
  Transmission Date: 20120403
  Serious: Yes (Death)
  Sender: FDA-Public Use
  Company Number: PHHY2011JP45517

PATIENT
  Sex: Female
  Weight: 59 kg

DRUGS (1)
  1. AFINITOR [Suspect]
     Indication: METASTATIC RENAL CELL CARCINOMA
     Dosage: 10 MG, DAILY
     Route: 048
     Dates: start: 20110106, end: 20110203

REACTIONS (7)
  - NEOPLASM PROGRESSION [None]
  - LYMPHOCYTE COUNT INCREASED [None]
  - C-REACTIVE PROTEIN INCREASED [None]
  - BLOOD TRIGLYCERIDES INCREASED [None]
  - NEOPLASM MALIGNANT [None]
  - PLATELET COUNT DECREASED [None]
  - BLOOD CHOLESTEROL INCREASED [None]
